FAERS Safety Report 11709156 (Version 2)
Quarter: 2015Q4

REPORT INFORMATION
  Report Type: Spontaneous
  Country: US (occurrence: US)
  Receive Date: 20151104
  Receipt Date: 20151110
  Transmission Date: 20160304
  Serious: No
  Sender: FDA-Public Use
  Company Number: US-ELI_LILLY_AND_COMPANY-US201103002548

PATIENT
  Age: 63 Year
  Sex: Female

DRUGS (4)
  1. FORTEO [Suspect]
     Active Substance: TERIPARATIDE
     Dosage: 20 UG, QD
     Dates: start: 201103
  2. FORTEO [Suspect]
     Active Substance: TERIPARATIDE
     Dosage: 20 UG, QD
  3. FORTEO [Suspect]
     Active Substance: TERIPARATIDE
     Dosage: 20 UG, QD
  4. FORTEO [Suspect]
     Active Substance: TERIPARATIDE
     Indication: OSTEOPOROSIS
     Dosage: 20 UG, DAILY (1/D)
     Route: 065
     Dates: start: 20110301, end: 20110305

REACTIONS (11)
  - Feeling abnormal [Unknown]
  - Vertigo [Unknown]
  - Injection site bruising [Unknown]
  - Pain in jaw [Unknown]
  - Toothache [Recovering/Resolving]
  - Ear pain [Unknown]
  - Hypotension [Unknown]
  - Anxiety [Unknown]
  - Dizziness [Recovering/Resolving]
  - Salivary hypersecretion [Unknown]
  - Somnolence [Unknown]

NARRATIVE: CASE EVENT DATE: 201103
